FAERS Safety Report 23204256 (Version 1)
Quarter: 2023Q4

REPORT INFORMATION
  Report Type: Spontaneous
  Country: JP (occurrence: JP)
  Receive Date: 20231120
  Receipt Date: 20231120
  Transmission Date: 20240110
  Serious: Yes (Other)
  Sender: FDA-Public Use
  Company Number: JP-ONO-2023JP026688

PATIENT
  Sex: Female

DRUGS (8)
  1. RIVASTIGMINE [Suspect]
     Active Substance: RIVASTIGMINE
     Dosage: 18 MG, QD (TAPE (INCLUDING POULTICE))
     Route: 062
  2. RIVASTIGMINE [Suspect]
     Active Substance: RIVASTIGMINE
     Dosage: 18 MG, QD (TAPE (INCLUDING POULTICE))
     Route: 062
  3. RIVASTIGMINE [Suspect]
     Active Substance: RIVASTIGMINE
     Dosage: 18 MG, QD (TAPE (INCLUDING POULTICE))
     Route: 062
  4. RIVASTIGMINE [Suspect]
     Active Substance: RIVASTIGMINE
     Dosage: 18 MG, QD (TAPE (INCLUDING POULTICE))
     Route: 062
  5. RIVASTIGMINE [Suspect]
     Active Substance: RIVASTIGMINE
     Dosage: 4.5 MG, QD (TAPE (INCLUDING POULTICE))
     Route: 062
  6. RIVASTIGMINE [Suspect]
     Active Substance: RIVASTIGMINE
     Dosage: 9 MG, QD (TAPE (INCLUDING POULTICE))
     Route: 062
  7. RIVASTIGMINE [Suspect]
     Active Substance: RIVASTIGMINE
     Dosage: 9 MG, QD (TAPE (INCLUDING POULTICE))
     Route: 062
  8. RIVASTIGMINE [Suspect]
     Active Substance: RIVASTIGMINE
     Indication: Dementia Alzheimer^s type
     Dosage: UNK (TAPE (INCLUDING POULTICE))
     Route: 062

REACTIONS (14)
  - Delirium [Unknown]
  - Pollakiuria [Unknown]
  - Physical deconditioning [Unknown]
  - Chest discomfort [Unknown]
  - Heat illness [Unknown]
  - Constipation [Unknown]
  - N-terminal prohormone brain natriuretic peptide increased [Unknown]
  - Illness [Unknown]
  - Inappropriate schedule of product administration [Unknown]
  - Wrong technique in product usage process [Unknown]
  - Malaise [Unknown]
  - Dehydration [Unknown]
  - Diarrhoea [Unknown]
  - Fall [Unknown]
